FAERS Safety Report 8582457-8 (Version None)
Quarter: 2012Q3

REPORT INFORMATION
  Report Type: 
  Country: None (occurrence: None)
  Receive Date: 20120809
  Receipt Date: 20120802
  Transmission Date: 20120928
  Serious: Yes (Other)
  Sender: FDA-Public Use
  Company Number: GB-JNJFOC-20120802603

PATIENT
  Sex: Male

DRUGS (2)
  1. NICORETTE [Suspect]
     Indication: SMOKING CESSATION THERAPY
     Dosage: FOR FEW WEEKS
     Route: 048
     Dates: end: 20080101
  2. NICORETTE [Suspect]
     Indication: SMOKING CESSATION THERAPY
     Route: 048
     Dates: start: 20080101

REACTIONS (2)
  - NICOTINE DEPENDENCE [None]
  - INCORRECT DRUG ADMINISTRATION DURATION [None]
